FAERS Safety Report 10305861 (Version 2)
Quarter: 2014Q3

REPORT INFORMATION
  Report Type: Spontaneous
  Country: US (occurrence: None)
  Receive Date: 20140711
  Receipt Date: 20140807
  Transmission Date: 20150326
  Serious: Yes (Other)
  Sender: FDA-Public Use
  Company Number: UNT-2014-000928

PATIENT
  Age: 46 Year
  Sex: Male
  Weight: 77.1 kg

DRUGS (3)
  1. TYVASO [Suspect]
     Active Substance: TREPROSTINIL
     Indication: PULMONARY ARTERIAL HYPERTENSION
     Route: 055
     Dates: start: 20140609
  2. ADCIRCA (TADALAFIL) UNKNOWN [Concomitant]
     Indication: PRODUCT USED FOR UNKNOWN INDICATION
  3. LETAIRIS [Concomitant]
     Active Substance: AMBRISENTAN

REACTIONS (15)
  - Abdominal discomfort [None]
  - Depression [None]
  - Urticaria [None]
  - Headache [None]
  - Dysarthria [None]
  - Vomiting [None]
  - Dizziness [None]
  - Memory impairment [None]
  - Physical assault [None]
  - Heart rate increased [None]
  - Periorbital contusion [None]
  - Throat irritation [None]
  - Nausea [None]
  - Pain [None]
  - Oropharyngeal pain [None]

NARRATIVE: CASE EVENT DATE: 201405
